FAERS Safety Report 8152083 (Version 3)
Quarter: 2013Q1

REPORT INFORMATION
  Report Type: Spontaneous
  Country: US (occurrence: US)
  Receive Date: 20110922
  Receipt Date: 20130218
  Transmission Date: 20140127
  Serious: Yes (Other)
  Sender: FDA-Public Use
  Company Number: US-ASTRAZENECA-2011SE12737

PATIENT
  Age: 28 Year
  Sex: Male

DRUGS (29)
  1. SEROQUEL [Suspect]
     Route: 048
     Dates: start: 20081103
  2. METOCLOPRAMIDE [Concomitant]
     Route: 048
     Dates: start: 20070307
  3. LOPERAMIDE [Concomitant]
     Route: 048
     Dates: start: 20070307
  4. ACETAMINOPHEN [Concomitant]
     Dosage: 325-500 MG
     Route: 048
     Dates: start: 20070308
  5. NAPROXEN [Concomitant]
     Route: 048
     Dates: start: 20070322
  6. MELOXICAM [Concomitant]
     Route: 048
     Dates: start: 20070417
  7. MELOXICAM [Concomitant]
     Route: 048
     Dates: start: 20090506
  8. PERCOCET [Concomitant]
     Route: 048
     Dates: start: 20070430
  9. METHOCARBAMOL [Concomitant]
     Route: 048
     Dates: start: 20070430
  10. TRAMADOL [Concomitant]
     Route: 048
     Dates: start: 20070711
  11. LORTAB [Concomitant]
     Dosage: 7.5/500
     Route: 048
     Dates: start: 20070724
  12. PROMETHAZINE [Concomitant]
     Route: 048
     Dates: start: 20070814
  13. GABAPENTIN/NEURONTIN [Concomitant]
     Route: 048
     Dates: start: 20071120
  14. GABAPENTIN/NEURONTIN [Concomitant]
     Route: 048
     Dates: start: 20090506
  15. DOXYCYCLINE [Concomitant]
     Route: 048
     Dates: start: 20080122
  16. OXYCODONE/OXYCODONE HYDROCHLORIDE [Concomitant]
     Route: 048
     Dates: start: 20081016
  17. OXYCODONE/OXYCODONE HYDROCHLORIDE [Concomitant]
     Route: 048
     Dates: start: 20090506
  18. TELMISARTAN [Concomitant]
     Route: 048
     Dates: start: 20081022
  19. SERTRALINE [Concomitant]
     Route: 048
     Dates: start: 20081103
  20. LISINOPRIL [Concomitant]
     Route: 048
     Dates: start: 20081022
  21. SIMVASTATIN/ZOCOR [Concomitant]
     Route: 048
     Dates: start: 20081210
  22. SIMVASTATIN/ZOCOR [Concomitant]
     Route: 048
     Dates: start: 20090506
  23. TELMISARTAN/HYDROCHLOROTHIAZIDE [Concomitant]
     Dosage: 40/12.5 MG EVERY MORNING
     Route: 048
     Dates: start: 20090506
  24. ZOLOFT [Concomitant]
     Dates: start: 20090407
  25. ATENOLOL [Concomitant]
     Dates: start: 20090407
  26. ATENOLOL [Concomitant]
     Route: 048
     Dates: start: 20090506
  27. TRAZADONE [Concomitant]
     Dates: start: 20090407
  28. ACYCLOVIR [Concomitant]
     Route: 048
     Dates: start: 20090506
  29. ASPIRIN [Concomitant]
     Route: 048
     Dates: start: 20090506

REACTIONS (4)
  - Pancreatitis [Unknown]
  - Diabetic coma [Unknown]
  - Type 2 diabetes mellitus [Unknown]
  - Diabetes mellitus inadequate control [Unknown]
